FAERS Safety Report 7159144-6 (Version None)
Quarter: 2010Q4

REPORT INFORMATION
  Report Type: 
  Country: None (occurrence: None)
  Receive Date: 20101214
  Receipt Date: 20101207
  Transmission Date: 20110411
  Serious: Yes (Other)
  Sender: FDA-Public Use
  Company Number: US-PFIZER INC-2010162941

PATIENT
  Sex: Female
  Weight: 86.16 kg

DRUGS (6)
  1. CHANTIX [Suspect]
     Indication: SMOKING CESSATION THERAPY
     Dosage: 0.5 MG, 1X/DAY
     Route: 048
     Dates: start: 20101101
  2. VALSARTAN [Concomitant]
     Indication: HYPERTENSION
     Dosage: 160 MG, 1X/DAY
     Route: 048
  3. LORTAB [Concomitant]
     Dosage: 10/500 MG; THREE TIMES A DAY
     Route: 048
  4. SOMA [Concomitant]
     Dosage: 350 MG, 3X/DAY
     Route: 048
  5. VALIUM [Concomitant]
     Dosage: 10 MG, 2X/DAY
     Route: 048
  6. CLONAZEPAM [Concomitant]
     Dosage: 1 MG, DAILY
     Route: 048

REACTIONS (2)
  - AGGRESSION [None]
  - EMOTIONAL DISORDER [None]
